FAERS Safety Report 10907826 (Version 2)
Quarter: 2015Q3

REPORT INFORMATION
  Report Type: Spontaneous
  Country: US (occurrence: US)
  Receive Date: 20150312
  Receipt Date: 20150924
  Transmission Date: 20151125
  Serious: No
  Sender: FDA-Public Use
  Company Number: US-INCYTE CORPORATION-2014IN003859

PATIENT
  Age: 83 Year
  Sex: Female

DRUGS (9)
  1. JAKAFI [Suspect]
     Active Substance: RUXOLITINIB
     Dosage: 20 MG, BID
     Route: 048
     Dates: start: 201501, end: 20150407
  2. METOPROLOL                         /00376902/ [Concomitant]
     Active Substance: METOPROLOL
  3. HYDROXYUREA. [Concomitant]
     Active Substance: HYDROXYUREA
  4. LOTEMAX [Concomitant]
     Active Substance: LOTEPREDNOL ETABONATE
  5. FOLIC ACID. [Concomitant]
     Active Substance: FOLIC ACID
  6. XARELTO [Concomitant]
     Active Substance: RIVAROXABAN
  7. JAKAFI [Suspect]
     Active Substance: RUXOLITINIB
     Indication: MYELOFIBROSIS
     Dosage: 15 MG, BID
     Route: 048
     Dates: start: 20141029
  8. FERREX [Concomitant]
  9. CHLORDIAZEPOXIDE [Concomitant]
     Active Substance: CHLORDIAZEPOXIDE

REACTIONS (9)
  - Onychalgia [Unknown]
  - Sensitivity of teeth [Unknown]
  - Nail bed disorder [Not Recovered/Not Resolved]
  - Dizziness [Unknown]
  - Stomatitis [Not Recovered/Not Resolved]
  - Abdominal pain upper [Unknown]
  - Pain in extremity [Unknown]
  - Balance disorder [Unknown]
  - Back pain [Unknown]

NARRATIVE: CASE EVENT DATE: 201411
